FAERS Safety Report 4321126-7 (Version None)
Quarter: 2004Q1

REPORT INFORMATION
  Report Type: 
  Country: None (occurrence: None)
  Receive Date: 20040322
  Receipt Date: 20040309
  Transmission Date: 20041129
  Serious: Yes (Hospitalization)
  Sender: FDA-Public Use
  Company Number: JP-GLAXOSMITHKLINE-B0326254A

PATIENT
  Age: 8 Year
  Sex: Female

DRUGS (13)
  1. ALKERAN [Suspect]
     Indication: STEM CELL TRANSPLANT
     Route: 042
     Dates: start: 20021003, end: 20021004
  2. GRAN [Concomitant]
     Route: 042
     Dates: start: 20021008, end: 20021017
  3. DIFLUCAN [Concomitant]
     Route: 042
     Dates: start: 20021011, end: 20021017
  4. MAXIPIME [Concomitant]
     Route: 042
     Dates: start: 20021010, end: 20021014
  5. GASTER [Concomitant]
     Route: 042
     Dates: start: 20021014, end: 20021017
  6. ASPIRIN [Concomitant]
     Route: 048
     Dates: start: 20021010, end: 20021017
  7. PENTAZOCINE [Concomitant]
     Route: 042
     Dates: start: 20021009, end: 20021012
  8. FLUMARIN [Concomitant]
     Route: 042
     Dates: start: 20021007, end: 20021010
  9. PRIMPERAN INJ [Concomitant]
     Route: 042
     Dates: start: 20021009, end: 20021010
  10. LEPETAN [Concomitant]
     Route: 042
     Dates: start: 20021014, end: 20021016
  11. ATARAX [Concomitant]
     Route: 042
     Dates: start: 20021014, end: 20021014
  12. FOSMICIN S [Concomitant]
     Route: 042
     Dates: start: 20021014, end: 20021018
  13. CARBENIN [Concomitant]
     Route: 042
     Dates: start: 20021014, end: 20021018

REACTIONS (1)
  - VENTRICULAR EXTRASYSTOLES [None]
